FAERS Safety Report 24826432 (Version 1)
Quarter: 2025Q1

REPORT INFORMATION
  Report Type: Spontaneous
  Country: US (occurrence: US)
  Receive Date: 20250109
  Receipt Date: 20250109
  Transmission Date: 20250409
  Serious: No
  Sender: COOPERSURGICAL
  Company Number: US-COOPERSURGICAL, INC.-US-2024CPS000656

PATIENT
  Age: 20 Year
  Sex: Female
  Weight: 57.143 kg

DRUGS (4)
  1. PARAGARD T 380A [Suspect]
     Active Substance: COPPER
     Indication: Contraception
     Route: 015
     Dates: start: 20240301, end: 20240301
  2. IRON [Concomitant]
     Active Substance: IRON
     Indication: Anaemia
     Route: 065
  3. ASPIRIN [Concomitant]
     Active Substance: ASPIRIN
     Indication: Deep vein thrombosis
     Route: 065
  4. ASPIRIN [Concomitant]
     Active Substance: ASPIRIN
     Indication: Joint injury

REACTIONS (1)
  - Complication of device insertion [Recovered/Resolved]

NARRATIVE: CASE EVENT DATE: 20240301
